FAERS Safety Report 10188638 (Version 1)
Quarter: 2014Q2

REPORT INFORMATION
  Report Type: Spontaneous
  Country: US (occurrence: US)
  Receive Date: 20140522
  Receipt Date: 20140522
  Transmission Date: 20141212
  Serious: No
  Sender: FDA-Public Use
  Company Number: US-SA-2014SA034934

PATIENT
  Age: 50 Year
  Sex: Male

DRUGS (1)
  1. LANTUS [Suspect]
     Indication: DIABETES MELLITUS
     Dosage: PATIENT USED 40 U IN THE MORNING AND EVENING IF BLOOD GLUCOSE WAS OVER 300
     Route: 058
     Dates: end: 201402

REACTIONS (3)
  - Pollakiuria [Unknown]
  - Drug dose omission [Unknown]
  - Blood glucose increased [Unknown]
